FAERS Safety Report 6080671-7 (Version None)
Quarter: 2009Q1

REPORT INFORMATION
  Report Type: 
  Country: None (occurrence: None)
  Receive Date: 20090217
  Receipt Date: 20090213
  Transmission Date: 20090719
  Serious: Yes (Other)
  Sender: FDA-Public Use
  Company Number: US-ALLERGAN-0901966US

PATIENT
  Sex: Female

DRUGS (3)
  1. REFRESH ENDURA LUBRICANT EYE DROPS [Suspect]
     Indication: DRY EYE
     Dosage: 1 GTT, SINGLE
     Route: 047
     Dates: start: 20090211
  2. SYNTHROID [Concomitant]
     Indication: HYPOTHYROIDISM
  3. POTASSIUM PILLS [Concomitant]
     Indication: SUPPLEMENTATION THERAPY

REACTIONS (2)
  - HEART RATE INCREASED [None]
  - OCULAR HYPERAEMIA [None]
